FAERS Safety Report 18351773 (Version 3)
Quarter: 2020Q4

REPORT INFORMATION
  Report Type: Spontaneous
  Country: IT (occurrence: IT)
  Receive Date: 20201007
  Receipt Date: 20201217
  Transmission Date: 20210114
  Serious: Yes (Life-Threatening, Hospitalization, Other)
  Sender: FDA-Public Use
  Company Number: IT-LUPIN PHARMACEUTICALS INC.-2020-06821

PATIENT
  Age: 55 Year
  Sex: Female

DRUGS (15)
  1. AMOXICILLIN + CLAVULANIC ACID [Interacting]
     Active Substance: AMOXICILLIN\CLAVULANIC ACID
     Indication: TOOTH INFECTION
     Dosage: 1 GRAM, BID (EVERY 12-HOURS)
     Route: 048
  2. FUROSEMIDE. [Concomitant]
     Active Substance: FUROSEMIDE
     Indication: DIURETIC THERAPY
     Dosage: 25 MILLIGRAM QOD (EVERY OTHER DAY)
     Route: 065
     Dates: start: 2015
  3. CANRENONE [Concomitant]
     Active Substance: CANRENONE
     Indication: DIURETIC THERAPY
     Dosage: 200 MILLIGRAM, QOD
     Route: 065
  4. URSODEOXYCHOLIC ACID [Concomitant]
     Active Substance: URSODIOL
     Indication: PRODUCT USED FOR UNKNOWN INDICATION
     Dosage: 450 MILLIGRAM, QD
     Route: 065
     Dates: start: 2015
  5. ATORVASTATIN CALCIUM. [Suspect]
     Active Substance: ATORVASTATIN CALCIUM
     Indication: BLOOD CHOLESTEROL INCREASED
     Dosage: 40 MILLIGRAM, QD
     Route: 065
     Dates: start: 2015
  6. AMIODARONE [Suspect]
     Active Substance: AMIODARONE
     Indication: CARDIOVERSION
     Dosage: 350 MILLIGRAM EVERY 60 MIN
     Route: 042
  7. BISOPROLOL [Concomitant]
     Active Substance: BISOPROLOL
     Indication: ACUTE MYOCARDIAL INFARCTION
     Dosage: 10 MILLIGRAM, QD
     Route: 065
     Dates: start: 2015
  8. APIXABAN [Concomitant]
     Active Substance: APIXABAN
     Indication: ANTICOAGULANT THERAPY
     Dosage: 10 MILLIGRAM, QD
     Route: 065
     Dates: start: 2015
  9. FUROSEMIDE. [Concomitant]
     Active Substance: FUROSEMIDE
     Indication: HAEMODYNAMIC INSTABILITY
     Dosage: 100 MILLIGRAM, UNK
     Route: 042
  10. METOPROLOL. [Concomitant]
     Active Substance: METOPROLOL
     Indication: PRODUCT USED FOR UNKNOWN INDICATION
     Dosage: 150 MILLIGRAM, QD
     Route: 065
  11. OMEPRAZOLE. [Concomitant]
     Active Substance: OMEPRAZOLE
     Indication: PRODUCT USED FOR UNKNOWN INDICATION
     Dosage: 40 MILLIGRAM, QD
     Route: 065
     Dates: start: 2015
  12. RAMIPRIL. [Concomitant]
     Active Substance: RAMIPRIL
     Indication: ACUTE MYOCARDIAL INFARCTION
     Dosage: 2.5 MILLIGRAM, QD
     Route: 065
     Dates: start: 2015
  13. AMIODARONE [Suspect]
     Active Substance: AMIODARONE
     Dosage: 900 MILLIGRAM, QD (EVERY 24-HOUR)
     Route: 042
  14. FUROSEMIDE. [Concomitant]
     Active Substance: FUROSEMIDE
     Indication: ACUTE MYOCARDIAL INFARCTION
     Dosage: 125 MILLIGRAM, QD
     Route: 048
  15. LEVOTHYROXINE. [Concomitant]
     Active Substance: LEVOTHYROXINE
     Indication: HYPOTHYROIDISM
     Dosage: 50 MICROGRAM, QD
     Route: 065
     Dates: start: 2015

REACTIONS (5)
  - Drug-induced liver injury [Recovered/Resolved]
  - Drug level increased [Recovered/Resolved]
  - Rhabdomyolysis [Recovered/Resolved]
  - Liver injury [Recovered/Resolved]
  - Drug interaction [Unknown]
